FAERS Safety Report 26163071 (Version 1)
Quarter: 2025Q4

REPORT INFORMATION
  Report Type: Spontaneous
  Country: US (occurrence: None)
  Receive Date: 20251216
  Receipt Date: 20251216
  Transmission Date: 20260117
  Serious: Yes (Hospitalization)
  Sender: FDA-CTU
  Company Number: None

PATIENT
  Age: 66 Year
  Sex: Male
  Weight: 51.17 kg

DRUGS (3)
  1. CARBOPLATIN [Suspect]
     Active Substance: CARBOPLATIN
     Dates: end: 20250908
  2. DURVALUMAB [Suspect]
     Active Substance: DURVALUMAB
     Dates: end: 20251031
  3. PEMETREXED [Suspect]
     Active Substance: PEMETREXED
     Dates: end: 20250908

REACTIONS (16)
  - Pleural effusion [None]
  - Hypoxia [None]
  - Atelectasis [None]
  - Lung consolidation [None]
  - Oesophagitis [None]
  - Condition aggravated [None]
  - Pneumothorax [None]
  - Hilar lymphadenopathy [None]
  - Pulmonary septal thickening [None]
  - Pneumonia [None]
  - Radiation pneumonitis [None]
  - Immune-mediated lung disease [None]
  - Dizziness [None]
  - Nausea [None]
  - Chest pain [None]
  - Disease progression [None]

NARRATIVE: CASE EVENT DATE: 20251128
